FAERS Safety Report 7142103-7 (Version None)
Quarter: 2010Q4

REPORT INFORMATION
  Report Type: 
  Country: None (occurrence: None)
  Receive Date: 20101203
  Receipt Date: 20101203
  Transmission Date: 20110411
  Serious: Yes (Hospitalization)
  Sender: FDA-Public Use
  Company Number: None

PATIENT
  Sex: Male
  Weight: 81.6475 kg

DRUGS (1)
  1. MAGNEVIST [Suspect]
     Indication: ANAPHYLACTIC REACTION
     Dosage: 16CC IV
     Route: 042
     Dates: start: 20051230, end: 20051230

REACTIONS (14)
  - ANAPHYLACTIC REACTION [None]
  - APHASIA [None]
  - CONFUSIONAL STATE [None]
  - CONTRAST MEDIA REACTION [None]
  - CONTUSION [None]
  - DRUG ADMINISTRATION ERROR [None]
  - DYSLEXIA [None]
  - FEAR OF DEATH [None]
  - INJECTION SITE PAIN [None]
  - LOSS OF EMPLOYMENT [None]
  - MEMORY IMPAIRMENT [None]
  - MULTIPLE INJURIES [None]
  - POST-TRAUMATIC STRESS DISORDER [None]
  - TINNITUS [None]
